FAERS Safety Report 9509956 (Version 1)
Quarter: 2013Q3

REPORT INFORMATION
  Report Type: Spontaneous
  Country: US (occurrence: US)
  Receive Date: 20130909
  Receipt Date: 20130909
  Transmission Date: 20140515
  Serious: No
  Sender: FDA-Public Use
  Company Number: US-BRISTOL-MYERS SQUIBB COMPANY-18788406

PATIENT
  Age: 57 Year
  Sex: Male

DRUGS (1)
  1. ABILIFY [Suspect]
     Dosage: INITIALLY 20MG DOSE WAS TAKEN THEN REDUCED TO 10MG ON JAN2008 AND THEN STOPPED
     Dates: start: 2005

REACTIONS (2)
  - Pain [Unknown]
  - Extrapyramidal disorder [Unknown]
